FAERS Safety Report 12837776 (Version 2)
Quarter: 2019Q3

REPORT INFORMATION
  Report Type: Report from Study
  Country: US (occurrence: US)
  Receive Date: 20161012
  Receipt Date: 20190701
  Transmission Date: 20191004
  Serious: Yes (Hospitalization, Other)
  Sender: FDA-Public Use
  Company Number: US-AMGEN-USASL2016136272

PATIENT
  Age: 63 Year
  Sex: Female

DRUGS (3)
  1. VITAMIN D3 [Concomitant]
     Active Substance: CHOLECALCIFEROL
     Dosage: 5000 UNIT, QWK
  2. PROLIA [Suspect]
     Active Substance: DENOSUMAB
     Indication: OSTEOPOROSIS POSTMENOPAUSAL
     Dosage: 60 MILLIGRAM, Q6MO
     Route: 065
     Dates: start: 201509
  3. CALCIUM [Concomitant]
     Active Substance: CALCIUM
     Dosage: 1200 MILLIGRAM

REACTIONS (44)
  - Urinary tract infection [Unknown]
  - Endoscopy [Unknown]
  - Burning sensation [Unknown]
  - Arthralgia [Recovering/Resolving]
  - Discomfort [Unknown]
  - Diarrhoea [Unknown]
  - Foot fracture [Unknown]
  - Cardiac disorder [Unknown]
  - Rash erythematous [Unknown]
  - Back pain [Recovering/Resolving]
  - Pruritus [Unknown]
  - Mobility decreased [Unknown]
  - Fibromyalgia [Unknown]
  - Meningitis [Unknown]
  - Fall [Unknown]
  - Eye disorder [Unknown]
  - Skin exfoliation [Unknown]
  - Blister [Unknown]
  - Drug ineffective [Unknown]
  - Bone atrophy [Unknown]
  - Walking aid user [Unknown]
  - Pain in jaw [Recovering/Resolving]
  - Dry skin [Unknown]
  - Contusion [Unknown]
  - Immune system disorder [Unknown]
  - Cementoplasty [Unknown]
  - Skin discolouration [Unknown]
  - Arthropathy [Unknown]
  - Musculoskeletal disorder [Unknown]
  - Pain in extremity [Unknown]
  - Migraine [Unknown]
  - Pain [Recovered/Resolved]
  - General physical health deterioration [Unknown]
  - Bone pain [Recovering/Resolving]
  - Gait disturbance [Unknown]
  - Insomnia [Unknown]
  - Dermatitis [Unknown]
  - Bone loss [Unknown]
  - Colonoscopy [Unknown]
  - Rib fracture [Unknown]
  - Ear pain [Recovering/Resolving]
  - Eyelid margin crusting [Unknown]
  - Breast enlargement [Unknown]
  - Myalgia [Unknown]

NARRATIVE: CASE EVENT DATE: 201609
